FAERS Safety Report 19494144 (Version 1)
Quarter: 2021Q3

REPORT INFORMATION
  Report Type: Spontaneous
  Country: JP (occurrence: JP)
  Receive Date: 20210705
  Receipt Date: 20210705
  Transmission Date: 20211014
  Serious: Yes (Other)
  Sender: FDA-Public Use
  Company Number: JP-AMGEN-JPNSP2021102811

PATIENT
  Age: 7 Decade
  Sex: Male

DRUGS (1)
  1. VECTIBIX [Suspect]
     Active Substance: PANITUMUMAB
     Indication: COLON CANCER
     Dosage: 6 MILLIGRAM/KILOGRAM
     Route: 042
     Dates: start: 202101

REACTIONS (2)
  - Dermatitis acneiform [Recovering/Resolving]
  - Device related infection [Recovered/Resolved]

NARRATIVE: CASE EVENT DATE: 202105
